FAERS Safety Report 20889350 (Version 1)
Quarter: 2022Q2

REPORT INFORMATION
  Report Type: Spontaneous
  Country: US (occurrence: US)
  Receive Date: 20220530
  Receipt Date: 20220530
  Transmission Date: 20220721
  Serious: Yes (Hospitalization)
  Sender: FDA-Public Use
  Company Number: US-NOVARTISTESTPH-NVSC2022US122114

PATIENT
  Sex: Male

DRUGS (1)
  1. KYMRIAH [Suspect]
     Active Substance: TISAGENLECLEUCEL
     Indication: B-cell lymphoma
     Dosage: ONE SINGLE DOSE (1.2E8 CAR-POSITIVE VIABLE T-CELLS)
     Route: 042
     Dates: start: 20220525, end: 20220525

REACTIONS (3)
  - Infusion related reaction [Unknown]
  - Chills [Unknown]
  - Body temperature increased [Unknown]
